FAERS Safety Report 14875412 (Version 1)
Quarter: 2018Q2

REPORT INFORMATION
  Report Type: Spontaneous
  Country: ES (occurrence: ES)
  Receive Date: 20180510
  Receipt Date: 20180510
  Transmission Date: 20180711
  Serious: Yes (Other)
  Sender: FDA-Public Use
  Company Number: ES-GILEAD-2018-0337454

PATIENT
  Age: 52 Year
  Sex: Male

DRUGS (3)
  1. EPCLUSA [Suspect]
     Active Substance: SOFOSBUVIR\VELPATASVIR
     Indication: HEPATITIS C
     Dosage: 1 DF, QD
     Route: 048
     Dates: start: 20180228
  2. AMLODIPINO APOTEX [Concomitant]
     Route: 048
     Dates: start: 20120102
  3. LOSARTAN/HIDROCLOROTIAZIDA SANDOZ [Concomitant]
     Indication: RENOVASCULAR HYPERTENSION
     Route: 048
     Dates: start: 20110901

REACTIONS (1)
  - Skin reaction [Recovering/Resolving]

NARRATIVE: CASE EVENT DATE: 20180401
